FAERS Safety Report 5022164-1 (Version None)
Quarter: 2006Q2

REPORT INFORMATION
  Report Type: 
  Country: None (occurrence: None)
  Receive Date: 20060609
  Receipt Date: 20060529
  Transmission Date: 20061013
  Serious: Yes (Other)
  Sender: FDA-Public Use
  Company Number: 2006SE03198

PATIENT
  Sex: Female
  Weight: 2.9 kg

DRUGS (9)
  1. SEROQUEL [Suspect]
     Route: 064
     Dates: end: 20050902
  2. ARINTAPIN [Concomitant]
     Indication: DEPRESSIVE SYMPTOM
     Route: 064
     Dates: end: 20050905
  3. LAMICTAL [Concomitant]
     Indication: AFFECTIVE DISORDER
     Route: 064
     Dates: end: 20050822
  4. LYSANTIN [Concomitant]
     Indication: ADVERSE DRUG REACTION
     Route: 064
  5. RIVOTRIL [Concomitant]
     Indication: SEDATIVE THERAPY
     Route: 064
  6. TRILAFON [Concomitant]
     Indication: SCHIZOAFFECTIVE DISORDER
     Route: 064
     Dates: start: 20050829, end: 20051103
  7. TRILAFON [Concomitant]
     Dosage: 12 + 8 MG
     Route: 064
     Dates: start: 20051103
  8. TRUXAL [Concomitant]
     Route: 064
     Dates: end: 20050822
  9. MIRTAZAPINE [Concomitant]
     Route: 064

REACTIONS (8)
  - DRUG EXPOSURE DURING PREGNANCY [None]
  - DRUG WITHDRAWAL SYNDROME NEONATAL [None]
  - HYPERTONIA NEONATAL [None]
  - MOVEMENT DISORDER [None]
  - NEONATAL DISORDER [None]
  - NERVOUS SYSTEM DISORDER [None]
  - POOR SUCKING REFLEX [None]
  - REFLEXES ABNORMAL [None]
